FAERS Safety Report 9990364 (Version 1)
Quarter: 2014Q1

REPORT INFORMATION
  Report Type: Report from Study
  Country: US (occurrence: US)
  Receive Date: 20140310
  Receipt Date: 20140310
  Transmission Date: 20141002
  Serious: No
  Sender: FDA-Public Use
  Company Number: US-ABBVIE-13P-163-1132971-00

PATIENT
  Age: 23 Year
  Sex: Male

DRUGS (5)
  1. HUMIRA [Suspect]
     Indication: COLITIS ULCERATIVE
     Dosage: LOADING DOSE DAY 1
     Dates: start: 201305, end: 201305
  2. HUMIRA [Suspect]
     Dosage: LOADING DOSE DAY 15
  3. HUMIRA [Suspect]
     Dates: end: 20130728
  4. HUMIRA [Suspect]
  5. MELATONIN [Concomitant]
     Indication: SLEEP DISORDER THERAPY

REACTIONS (5)
  - Injection site pain [Not Recovered/Not Resolved]
  - Injection site haemorrhage [Not Recovered/Not Resolved]
  - Nausea [Not Recovered/Not Resolved]
  - Vomiting [Not Recovered/Not Resolved]
  - Colitis ulcerative [Not Recovered/Not Resolved]
